FAERS Safety Report 7587375-X (Version None)
Quarter: 2011Q3

REPORT INFORMATION
  Report Type: 
  Country: None (occurrence: None)
  Receive Date: 20110701
  Receipt Date: 20110622
  Transmission Date: 20111222
  Serious: Yes (Hospitalization)
  Sender: FDA-Public Use
  Company Number: FR-ASTRAZENECA-2011SE38694

PATIENT
  Age: 70 Year
  Sex: Female

DRUGS (9)
  1. ATORVASTATIN CALCIUM [Suspect]
     Route: 048
  2. ARIMIDEX [Suspect]
     Indication: BREAST CANCER
     Route: 048
     Dates: start: 20051201, end: 20110509
  3. GLYBURIDE [Suspect]
     Indication: TYPE 2 DIABETES MELLITUS
     Route: 048
  4. ESBERIVEN FORT [Suspect]
     Route: 048
  5. LASIX [Suspect]
     Dosage: EITHER 125 MG OR 375 MG ACCORDING TO LOWER LIMB EDEMA
     Route: 048
     Dates: start: 20100101
  6. METFORMIN HCL [Suspect]
     Indication: TYPE 2 DIABETES MELLITUS
     Route: 048
  7. LORAZEPAM [Suspect]
     Route: 048
  8. DICYNONE [Suspect]
     Indication: ERYTHEMA
     Route: 048
     Dates: start: 20110202, end: 20110404
  9. DICYNONE [Suspect]
     Indication: PAIN
     Route: 048
     Dates: start: 20110202, end: 20110404

REACTIONS (2)
  - ANAEMIA [None]
  - VASCULAR PURPURA [None]
